FAERS Safety Report 16810270 (Version 5)
Quarter: 2021Q2

REPORT INFORMATION
  Report Type: Spontaneous
  Country: US (occurrence: US)
  Receive Date: 20190916
  Receipt Date: 20210624
  Transmission Date: 20210716
  Serious: Yes (Other)
  Sender: FDA-Public Use
  Company Number: US-GILEAD-2019-0428371

PATIENT
  Age: 43 Year
  Sex: Male
  Weight: 58.96 kg

DRUGS (43)
  1. VIREAD [Suspect]
     Active Substance: TENOFOVIR DISOPROXIL FUMARATE
     Indication: HIV INFECTION
     Dosage: UNK
     Route: 048
     Dates: start: 20020801, end: 20031110
  2. VIAGRA [Concomitant]
     Active Substance: SILDENAFIL CITRATE
  3. LOVENOX [LEVOFLOXACIN] [Concomitant]
     Active Substance: LEVOFLOXACIN
  4. FUZEON [Concomitant]
     Active Substance: ENFUVIRTIDE
  5. LOMOTIL [LOPERAMIDE HYDROCHLORIDE] [Concomitant]
     Active Substance: LOPERAMIDE HYDROCHLORIDE
  6. ASPIRIN [ACETYLSALICYLIC ACID] [Concomitant]
     Active Substance: ASPIRIN
  7. BACTRIM [Concomitant]
     Active Substance: SULFAMETHOXAZOLE\TRIMETHOPRIM
  8. INDINAVIR [Concomitant]
     Active Substance: INDINAVIR
  9. ATAZANAVIR. [Concomitant]
     Active Substance: ATAZANAVIR
  10. CRESTOR [Concomitant]
     Active Substance: ROSUVASTATIN CALCIUM
  11. CRIXIVAN [Concomitant]
     Active Substance: INDINAVIR SULFATE
  12. SUSTIVA [Concomitant]
     Active Substance: EFAVIRENZ
  13. ZIDOVUDINE+LAMIVUDINE [Concomitant]
     Active Substance: LAMIVUDINE\ZIDOVUDINE
  14. SEPTRA DS [Concomitant]
     Active Substance: SULFAMETHOXAZOLE\TRIMETHOPRIM
  15. NIZORAL [Concomitant]
     Active Substance: KETOCONAZOLE
  16. VIDEX [Concomitant]
     Active Substance: DIDANOSINE
  17. NEVIRAPINE. [Concomitant]
     Active Substance: NEVIRAPINE
  18. DELAVIRDINE [Concomitant]
     Active Substance: DELAVIRDINE
  19. VIREAD [Suspect]
     Active Substance: TENOFOVIR DISOPROXIL FUMARATE
     Indication: ACQUIRED IMMUNODEFICIENCY SYNDROME
     Dosage: UNK
     Route: 048
     Dates: start: 2001, end: 2003
  20. LIPITOR [Concomitant]
     Active Substance: ATORVASTATIN CALCIUM
  21. ACYCLOVIR [ACICLOVIR] [Concomitant]
     Active Substance: ACYCLOVIR
  22. WARFARIN [Concomitant]
     Active Substance: WARFARIN
  23. INTELENCE [Concomitant]
     Active Substance: ETRAVIRINE
  24. PREZCOBIX [Concomitant]
     Active Substance: COBICISTAT\DARUNAVIR ETHANOLATE
  25. RETROVIR [Concomitant]
     Active Substance: ZIDOVUDINE
  26. TIVICAY [Concomitant]
     Active Substance: DOLUTEGRAVIR SODIUM
  27. NIASPAN [Concomitant]
     Active Substance: NIACIN
  28. ULORIC [Concomitant]
     Active Substance: FEBUXOSTAT
  29. DESCOVY [Concomitant]
     Active Substance: EMTRICITABINE\TENOFOVIR ALAFENAMIDE FUMARATE
  30. METFORMIN [Concomitant]
     Active Substance: METFORMIN HYDROCHLORIDE
  31. COUMADIN [Concomitant]
     Active Substance: WARFARIN SODIUM
  32. EPIVIR [Concomitant]
     Active Substance: LAMIVUDINE
  33. KALETRA [Concomitant]
     Active Substance: LOPINAVIR\RITONAVIR
  34. ZIDOVUDINE. [Concomitant]
     Active Substance: ZIDOVUDINE
  35. PNV [Concomitant]
  36. NORVIR [Concomitant]
     Active Substance: RITONAVIR
  37. STAVUDINE. [Concomitant]
     Active Substance: STAVUDINE
  38. ANDROGEL [Concomitant]
     Active Substance: TESTOSTERONE
  39. SYNTHROID [Concomitant]
     Active Substance: LEVOTHYROXINE SODIUM
  40. DIOVAN [Concomitant]
     Active Substance: VALSARTAN
  41. PRAVASTATIN. [Concomitant]
     Active Substance: PRAVASTATIN
  42. PREZISTA [Concomitant]
     Active Substance: DARUNAVIR ETHANOLATE
  43. ISENTRESS [Concomitant]
     Active Substance: RALTEGRAVIR POTASSIUM

REACTIONS (21)
  - Blood creatinine increased [Unknown]
  - Osteonecrosis [Unknown]
  - Chronic kidney disease [Unknown]
  - End stage renal disease [Not Recovered/Not Resolved]
  - Anxiety [Not Recovered/Not Resolved]
  - Renal failure [Unknown]
  - Proteinuria [Not Recovered/Not Resolved]
  - Renal mass [Not Recovered/Not Resolved]
  - Renal cell carcinoma [Not Recovered/Not Resolved]
  - Osteopenia [Not Recovered/Not Resolved]
  - Vitamin D deficiency [Unknown]
  - Nephropathy [Not Recovered/Not Resolved]
  - Pain [Not Recovered/Not Resolved]
  - Anhedonia [Not Recovered/Not Resolved]
  - Bone loss [Unknown]
  - Acute kidney injury [Not Recovered/Not Resolved]
  - Renal cyst [Not Recovered/Not Resolved]
  - Economic problem [Not Recovered/Not Resolved]
  - Bone density decreased [Unknown]
  - Depression [Unknown]
  - Emotional distress [Not Recovered/Not Resolved]

NARRATIVE: CASE EVENT DATE: 20030814
